FAERS Safety Report 16217989 (Version 2)
Quarter: 2020Q1

REPORT INFORMATION
  Report Type: Spontaneous
  Country: US (occurrence: US)
  Receive Date: 20190419
  Receipt Date: 20200324
  Transmission Date: 20200409
  Serious: Yes (Hospitalization, Other)
  Sender: FDA-Public Use
  Company Number: US-JNJFOC-20190421420

PATIENT
  Age: 30 Year
  Sex: Female

DRUGS (4)
  1. ASPIRIN                            /00002701/ [Suspect]
     Active Substance: ASPIRIN
     Route: 048
  2. XARELTO [Suspect]
     Active Substance: RIVAROXABAN
     Indication: DEEP VEIN THROMBOSIS
     Route: 048
     Dates: start: 201408, end: 201704
  3. XARELTO [Suspect]
     Active Substance: RIVAROXABAN
     Indication: THROMBOSIS
     Route: 048
     Dates: start: 2011, end: 201408
  4. XARELTO [Suspect]
     Active Substance: RIVAROXABAN
     Indication: ANTITHROMBIN III DEFICIENCY
     Route: 048
     Dates: start: 2017, end: 201706

REACTIONS (3)
  - Cerebral haemorrhage [Unknown]
  - Cerebrovascular accident [Unknown]
  - Menorrhagia [Unknown]

NARRATIVE: CASE EVENT DATE: 201408
